FAERS Safety Report 4842196-3 (Version None)
Quarter: 2005Q4

REPORT INFORMATION
  Report Type: 
  Country: None (occurrence: None)
  Receive Date: 20051201
  Receipt Date: 20051117
  Transmission Date: 20060501
  Serious: Yes (Hospitalization)
  Sender: FDA-Public Use
  Company Number: PHBS2005BR16977

PATIENT
  Age: 55 Year
  Sex: Female

DRUGS (4)
  1. DICLOFENAC [Suspect]
     Indication: PNEUMONIA
  2. HYDROCHLOROTHIAZIDE [Suspect]
  3. PENICILLIN [Suspect]
     Indication: PNEUMONIA
  4. ATENOLOL [Suspect]

REACTIONS (9)
  - BLOOD CREATININE INCREASED [None]
  - BLOOD UREA INCREASED [None]
  - BOWMAN'S MEMBRANE DISORDER [None]
  - CONGENITAL CYSTIC KIDNEY DISEASE [None]
  - HAEMODIALYSIS [None]
  - HAEMOGLOBIN DECREASED [None]
  - RENAL CYST [None]
  - RENAL FAILURE ACUTE [None]
  - RENAL TUBULAR NECROSIS [None]
